FAERS Safety Report 13071297 (Version 4)
Quarter: 2017Q2

REPORT INFORMATION
  Report Type: Report from Study
  Country: US (occurrence: US)
  Receive Date: 20161229
  Receipt Date: 20170526
  Transmission Date: 20170830
  Serious: Yes (Hospitalization, Other)
  Sender: FDA-Public Use
  Company Number: US-GILEAD-2016-0231914

PATIENT
  Age: 64 Year
  Sex: Female

DRUGS (20)
  1. ZETIA [Concomitant]
     Active Substance: EZETIMIBE
  2. PROTONIX                           /00661201/ [Concomitant]
     Active Substance: OMEPRAZOLE
  3. BUPROPION. [Concomitant]
     Active Substance: BUPROPION
  4. ALDACTONE [Concomitant]
     Active Substance: SPIRONOLACTONE
  5. TRULICITY [Concomitant]
     Active Substance: DULAGLUTIDE
  6. ACTOS [Concomitant]
     Active Substance: PIOGLITAZONE HYDROCHLORIDE
  7. ADEMPAS [Suspect]
     Active Substance: RIOCIGUAT
     Dosage: 2.5 MG, TID
     Route: 065
     Dates: start: 20160713
  8. TRAMADOL. [Concomitant]
     Active Substance: TRAMADOL
  9. ALDACTONE [Concomitant]
     Active Substance: SPIRONOLACTONE
  10. AMBRISENTAN [Suspect]
     Active Substance: AMBRISENTAN
     Indication: PULMONARY HYPERTENSION
     Dosage: 10 MG, QD
     Route: 065
     Dates: start: 20160307
  11. ADEMPAS [Suspect]
     Active Substance: RIOCIGUAT
     Indication: PULMONARY HYPERTENSION
     Dosage: 2.5 MG, TID
     Route: 065
  12. TIZANIDINE. [Concomitant]
     Active Substance: TIZANIDINE
  13. FENOFIBRATE. [Concomitant]
     Active Substance: FENOFIBRATE
  14. OXAPROZIN. [Concomitant]
     Active Substance: OXAPROZIN
  15. FLUDROCORTISONE [Concomitant]
     Active Substance: FLUDROCORTISONE
  16. BISOPROLOL [Concomitant]
     Active Substance: BISOPROLOL
  17. LASIX [Concomitant]
     Active Substance: FUROSEMIDE
  18. GABAPENTIN. [Concomitant]
     Active Substance: GABAPENTIN
  19. EFFEXOR [Concomitant]
     Active Substance: VENLAFAXINE HYDROCHLORIDE
  20. LEVOTHYROXINE. [Concomitant]
     Active Substance: LEVOTHYROXINE

REACTIONS (15)
  - Dehydration [Unknown]
  - Urinary tract infection [Unknown]
  - Sinus disorder [Not Recovered/Not Resolved]
  - Hyperhidrosis [Not Recovered/Not Resolved]
  - Bronchospasm [Unknown]
  - Dizziness [Unknown]
  - Diarrhoea [Unknown]
  - Dyspepsia [Not Recovered/Not Resolved]
  - Abdominal distension [Not Recovered/Not Resolved]
  - Frequent bowel movements [Not Recovered/Not Resolved]
  - Chest pain [Not Recovered/Not Resolved]
  - Headache [Not Recovered/Not Resolved]
  - Nasal inflammation [Not Recovered/Not Resolved]
  - Nausea [Not Recovered/Not Resolved]
  - Fatigue [Unknown]

NARRATIVE: CASE EVENT DATE: 20160712
